FAERS Safety Report 23343526 (Version 1)
Quarter: 2023Q4

REPORT INFORMATION
  Report Type: Spontaneous
  Country: US (occurrence: None)
  Receive Date: 20231227
  Receipt Date: 20231227
  Transmission Date: 20240110
  Serious: Yes (Other)
  Sender: FDA-Public Use
  Company Number: None

PATIENT
  Age: 35 Year
  Sex: Female
  Weight: 54 kg

DRUGS (5)
  1. DAXXIFY [Suspect]
     Active Substance: DAXIBOTULINUMTOXIN A-LANM
     Indication: Skin wrinkling
     Dates: start: 20231201
  2. Vitamins D [Concomitant]
  3. methylated B complex [Concomitant]
  4. Dha supplement [Concomitant]
  5. Beef organ complex [Concomitant]

REACTIONS (5)
  - Erythema [None]
  - Pruritus [None]
  - Urticaria [None]
  - Urticaria [None]
  - Eyelid ptosis [None]

NARRATIVE: CASE EVENT DATE: 20231201
